FAERS Safety Report 12967629 (Version 2)
Quarter: 2016Q4

REPORT INFORMATION
  Report Type: Spontaneous
  Country: US (occurrence: US)
  Receive Date: 20161123
  Receipt Date: 20161208
  Transmission Date: 20170207
  Serious: Yes (Other)
  Sender: FDA-Public Use
  Company Number: US-GLENMARK PHARMACEUTICALS INC, USA.-2016GMK025079

PATIENT
  Sex: Female

DRUGS (2)
  1. GABAPENTIN. [Suspect]
     Active Substance: GABAPENTIN
     Dosage: 300 MG, TID
     Route: 065
  2. GABAPENTIN. [Suspect]
     Active Substance: GABAPENTIN
     Indication: FIBROMYALGIA
     Dosage: UNK (DOSAGE WAS SLOWLY INCREASED)
     Route: 065

REACTIONS (5)
  - Coordination abnormal [Unknown]
  - Fall [Recovered/Resolved]
  - Balance disorder [Unknown]
  - Product use issue [Unknown]
  - Nervous system disorder [Unknown]
